FAERS Safety Report 21946102 (Version 3)
Quarter: 2023Q1

REPORT INFORMATION
  Report Type: Spontaneous
  Country: US (occurrence: US)
  Receive Date: 20230202
  Receipt Date: 20230227
  Transmission Date: 20230417
  Serious: Yes (Hospitalization, Other)
  Sender: FDA-Public Use
  Company Number: US-PFIZER INC-PV202300019071

PATIENT
  Age: 62 Year
  Sex: Male

DRUGS (2)
  1. BRAFTOVI [Suspect]
     Active Substance: ENCORAFENIB
     Dosage: 75 MG
     Route: 048
  2. MEKTOVI [Suspect]
     Active Substance: BINIMETINIB
     Dosage: 15 MG
     Route: 048

REACTIONS (5)
  - Second primary malignancy [Unknown]
  - Neoplasm [Unknown]
  - Haemorrhage [Unknown]
  - Spinal fracture [Unknown]
  - Neoplasm progression [Unknown]
